FAERS Safety Report 9181204 (Version 1)
Quarter: 2013Q1

REPORT INFORMATION
  Report Type: Spontaneous
  Country: US (occurrence: US)
  Receive Date: 20130322
  Receipt Date: 20130322
  Transmission Date: 20140127
  Serious: No
  Sender: FDA-Public Use
  Company Number: US-MYLANLABS-2012S1018713

PATIENT
  Sex: Female

DRUGS (4)
  1. EMSAM [Suspect]
     Dosage: QD
     Route: 062
     Dates: start: 20120831, end: 201209
  2. EMSAM [Suspect]
     Dosage: FOR 12 HRS ONLY THEN REMOVED
     Route: 062
     Dates: start: 201209
  3. ARMOUR THYROID [Concomitant]
  4. ACIDOPHILUS [Concomitant]

REACTIONS (4)
  - Dyspnoea [Not Recovered/Not Resolved]
  - Wrong technique in drug usage process [Not Recovered/Not Resolved]
  - Hypersensitivity [Not Recovered/Not Resolved]
  - Unevaluable event [Not Recovered/Not Resolved]
